FAERS Safety Report 20874905 (Version 1)
Quarter: 2022Q2

REPORT INFORMATION
  Report Type: Spontaneous
  Country: CH (occurrence: CH)
  Receive Date: 20220526
  Receipt Date: 20220526
  Transmission Date: 20220721
  Serious: Yes (Life-Threatening, Hospitalization, Other)
  Sender: FDA-Public Use
  Company Number: CH-SUN PHARMACEUTICAL INDUSTRIES LTD-2022R1-338072

PATIENT
  Age: 8 Year
  Sex: Female
  Weight: 25 kg

DRUGS (3)
  1. DOXORUBICIN [Suspect]
     Active Substance: DOXORUBICIN
     Indication: Chemotherapy
     Dosage: UNK (CUMULATIVE DOSES: 450 MG/M2)
     Route: 065
  2. CISPLATIN [Suspect]
     Active Substance: CISPLATIN
     Indication: Chemotherapy
     Dosage: UNK (CUMULATIVE DOSES: 450 MG/M2)
     Route: 065
  3. METHOTREXATE [Suspect]
     Active Substance: METHOTREXATE
     Indication: Chemotherapy
     Dosage: UNK (CUMULATIVE DOSES: 450 MG/M2)
     Route: 065

REACTIONS (3)
  - Cardiac failure [Recovering/Resolving]
  - Cardiomyopathy [Recovering/Resolving]
  - Human herpesvirus 6 infection [Recovered/Resolved]
